FAERS Safety Report 5711875-8 (Version None)
Quarter: 2008Q2

REPORT INFORMATION
  Report Type: 
  Country: None (occurrence: None)
  Receive Date: 20080421
  Receipt Date: 20080414
  Transmission Date: 20081010
  Serious: Yes (Hospitalization)
  Sender: FDA-Public Use
  Company Number: JP-BOEHRINGER INGELHEIM GMBH, GERMANY-2008-BP-06119NB

PATIENT
  Age: 79 Year
  Sex: Female

DRUGS (7)
  1. MICARDIS [Suspect]
     Route: 048
  2. ASPIRIN [Suspect]
     Route: 048
  3. SIGMART [Suspect]
     Route: 048
  4. FAMOTIDINE [Suspect]
     Route: 048
  5. FRANDOL S [Suspect]
     Route: 062
  6. NORVASC [Concomitant]
     Route: 048
  7. HARNAL [Concomitant]
     Route: 048

REACTIONS (1)
  - HYPOGLYCAEMIA [None]
